FAERS Safety Report 4698718-9 (Version None)
Quarter: 2005Q2

REPORT INFORMATION
  Report Type: 
  Country: None (occurrence: None)
  Receive Date: 20050622
  Receipt Date: 20050601
  Transmission Date: 20051028
  Serious: No
  Sender: FDA-Public Use
  Company Number: SU-2005-003624

PATIENT
  Age: 36 Year
  Sex: Male
  Weight: 104.3273 kg

DRUGS (7)
  1. BENICAR HCT [Suspect]
     Indication: HYPERTENSION
     Dosage: 20.125 MG QD PO
     Route: 048
     Dates: start: 20050529
  2. AVELOX [Concomitant]
  3. SINGULAIR ^DIECKMANN^ [Concomitant]
  4. INDOMETHACIN [Concomitant]
  5. NEXIUM [Concomitant]
  6. RHINOCORT [Concomitant]
  7. ATENOLOL [Concomitant]

REACTIONS (4)
  - DIZZINESS [None]
  - FEELING HOT [None]
  - FLUSHING [None]
  - PARAESTHESIA [None]
